FAERS Safety Report 4284707-5 (Version None)
Quarter: 2004Q1

REPORT INFORMATION
  Report Type: 
  Country: None (occurrence: None)
  Receive Date: 20040130
  Receipt Date: 20040119
  Transmission Date: 20041129
  Serious: Yes (Other)
  Sender: FDA-Public Use
  Company Number: FR-JNJFOC-20031100972

PATIENT
  Age: 39 Year
  Sex: Female

DRUGS (4)
  1. TOPIRAMATE [Suspect]
     Indication: EPILEPSY
     Dosage: 200 MG, 1 IN 1 DAY, ORAL
     Route: 048
     Dates: start: 20030101
  2. KEPPRA [Concomitant]
  3. DEPAKENE [Concomitant]
  4. PHENOBARBITAL TAB [Concomitant]

REACTIONS (2)
  - CHOLESTASIS [None]
  - HEPATIC TRAUMA [None]
